FAERS Safety Report 4957116-0 (Version None)
Quarter: 2006Q1

REPORT INFORMATION
  Report Type: 
  Country: None (occurrence: None)
  Receive Date: 20060329
  Receipt Date: 20021101
  Transmission Date: 20060701
  Serious: Yes (Disabling)
  Sender: FDA-Public Use
  Company Number: DE-MERCK-0603USA03474

PATIENT
  Age: 37 Year
  Sex: Male

DRUGS (22)
  1. SUSTIVA [Suspect]
     Indication: HIV INFECTION
     Route: 048
     Dates: start: 19990301, end: 19990701
  2. ZERIT [Suspect]
     Indication: HIV INFECTION
     Route: 065
     Dates: start: 19950701, end: 20000101
  3. VIDEX [Suspect]
     Indication: HIV INFECTION
     Route: 065
     Dates: start: 19960801, end: 19970801
  4. ZIDOVUDINE [Suspect]
     Route: 065
     Dates: start: 19950101, end: 20020601
  5. ZALCITABINE [Suspect]
     Indication: HIV INFECTION
     Route: 065
     Dates: start: 19950101, end: 19960101
  6. LAMIVUDINE [Suspect]
     Indication: HIV INFECTION
     Route: 065
     Dates: start: 19960101, end: 20020101
  7. SAQUINAVIR [Suspect]
     Indication: HIV INFECTION
     Route: 065
     Dates: start: 19960101, end: 19960801
  8. NEVIRAPINE [Suspect]
     Indication: HIV INFECTION
     Route: 065
     Dates: start: 19960801, end: 20001101
  9. ABACAVIR SULFATE [Suspect]
     Indication: HIV INFECTION
     Route: 065
     Dates: start: 19990301
  10. NELFINAVIR MESYLATE [Suspect]
     Indication: HIV INFECTION
     Route: 065
     Dates: start: 19990701, end: 20000101
  11. LOPINAVIR AND RITONAVIR [Suspect]
     Indication: HIV INFECTION
     Route: 065
     Dates: start: 20000701, end: 20010301
  12. CRIXIVAN [Suspect]
     Indication: HIV INFECTION
     Route: 065
     Dates: start: 20010701
  13. RITONAVIR [Suspect]
     Indication: HIV INFECTION
     Route: 065
     Dates: start: 20010701
  14. ENFUVIRTIDE [Suspect]
     Indication: HIV INFECTION
     Route: 065
     Dates: start: 20010701, end: 20011101
  15. TENOFOVIR [Suspect]
     Indication: HIV INFECTION
     Route: 065
     Dates: start: 20011101
  16. INSULIN [Concomitant]
     Route: 065
  17. GABAPENTIN [Concomitant]
     Route: 065
  18. SULFAMETHOXAZOLE AND TRIMETHOPRIM [Concomitant]
     Route: 065
  19. DAPSONE [Concomitant]
     Route: 065
  20. PYRIMETHAMINE [Concomitant]
     Route: 065
  21. LEUCOVORIN CALCIUM [Concomitant]
     Route: 065
  22. AZITHROMYCIN [Concomitant]
     Route: 065

REACTIONS (10)
  - ASTHENIA [None]
  - CYTOMEGALOVIRUS CHORIORETINITIS [None]
  - DIABETES MELLITUS [None]
  - DISTURBANCE IN ATTENTION [None]
  - FAT TISSUE INCREASED [None]
  - HYPERCHOLESTEROLAEMIA [None]
  - HYPERTRIGLYCERIDAEMIA [None]
  - LIPOATROPHY [None]
  - NAUSEA [None]
  - TOXOPLASMOSIS [None]
